FAERS Safety Report 17974023 (Version 1)
Quarter: 2020Q3

REPORT INFORMATION
  Report Type: Spontaneous
  Country: US (occurrence: US)
  Receive Date: 20200702
  Receipt Date: 20200702
  Transmission Date: 20201103
  Serious: Yes (Life-Threatening, Hospitalization)
  Sender: FDA-Public Use
  Company Number: None

PATIENT
  Age: 71 Year
  Sex: Male

DRUGS (2)
  1. EPTIFIBATIDE (EPTIFIBATIDE 0.75MG/ML INJ) [Suspect]
     Active Substance: EPTIFIBATIDE
     Route: 042
     Dates: start: 20200426, end: 20200427
  2. EPTIFIBATIDE (EPTIFIBATIDE 2MG/ML INJ) [Suspect]
     Active Substance: EPTIFIBATIDE
     Route: 042
     Dates: start: 20200426, end: 20200427

REACTIONS (6)
  - Procedural haemorrhage [None]
  - Endotracheal intubation complication [None]
  - Pulmonary haemorrhage [None]
  - Cardiac procedure complication [None]
  - Aspiration [None]
  - Coronary artery stenosis [None]

NARRATIVE: CASE EVENT DATE: 20200427
